FAERS Safety Report 15286224 (Version 1)
Quarter: 2018Q4

REPORT INFORMATION
  Report Type: Spontaneous
  Country: US (occurrence: US)
  Receive Date: 20180816
  Receipt Date: 20180816
  Transmission Date: 20190204
  Serious: Yes (Other)
  Sender: FDA-Public Use
  Company Number: US-TEVA-2018-US-943180

PATIENT
  Sex: Male

DRUGS (1)
  1. NEOMYTAB [Suspect]
     Active Substance: NEOMYCIN
     Indication: HEPATIC CIRRHOSIS
     Route: 065
     Dates: start: 1998, end: 20180807

REACTIONS (5)
  - Encephalopathy [Unknown]
  - Hepatic enzyme increased [Unknown]
  - Confusional state [Unknown]
  - Ammonia increased [Unknown]
  - Constipation [Unknown]

NARRATIVE: CASE EVENT DATE: 201808
